FAERS Safety Report 9210440 (Version 2)
Quarter: 2013Q2

REPORT INFORMATION
  Report Type: Spontaneous
  Country: FR (occurrence: FR)
  Receive Date: 20130404
  Receipt Date: 20130612
  Transmission Date: 20140414
  Serious: Yes (Hospitalization, Other)
  Sender: FDA-Public Use
  Company Number: FR-UCBSA-082032

PATIENT
  Age: 65 Year
  Sex: Male

DRUGS (5)
  1. CIMZIA [Suspect]
     Indication: RHEUMATOID ARTHRITIS
     Route: 058
     Dates: start: 2011, end: 201303
  2. ALLOPURINOL [Concomitant]
     Dosage: UNKNOWN DOSE
  3. FOLIC ACID [Concomitant]
     Dosage: UNKNOWN DOSE
  4. CATREX [Concomitant]
     Dosage: UNKNOWN DOSE
  5. MOPRAL [Concomitant]
     Dosage: UNKNOWN DOSE

REACTIONS (7)
  - Endocarditis bacterial [Recovered/Resolved]
  - Intervertebral discitis [Recovered/Resolved]
  - Staphylococcal sepsis [Recovered/Resolved]
  - Encephalitis [Recovered/Resolved]
  - Lung disorder [Recovered/Resolved]
  - Systemic candida [Recovered/Resolved]
  - Renal tubular disorder [Recovered/Resolved]
